FAERS Safety Report 11761868 (Version 1)
Quarter: 2015Q4

REPORT INFORMATION
  Report Type: Spontaneous
  Country: None (occurrence: GR)
  Receive Date: 20151120
  Receipt Date: 20151120
  Transmission Date: 20160304
  Serious: Yes (Other)
  Sender: FDA-Public Use
  Company Number: GR-PIERRE FABRE-1044502

PATIENT
  Age: 65 Year
  Sex: Female

DRUGS (3)
  1. MYOCET [Suspect]
     Active Substance: DOXORUBICIN
     Route: 042
     Dates: start: 201304, end: 201311
  2. CYCLOPHOSPHAMIDE. [Suspect]
     Active Substance: CYCLOPHOSPHAMIDE
     Route: 042
     Dates: start: 201304, end: 201311
  3. NAVELBINE [Suspect]
     Active Substance: VINORELBINE TARTRATE
     Indication: BREAST CANCER METASTATIC
     Route: 065

REACTIONS (1)
  - Hypersensitivity [Unknown]
